FAERS Safety Report 6000005-3 (Version None)
Quarter: 2008Q4

REPORT INFORMATION
  Report Type: 
  Country: None (occurrence: None)
  Receive Date: 20081211
  Receipt Date: 20080910
  Transmission Date: 20090506
  Serious: No
  Sender: FDA-Public Use
  Company Number: US024602

PATIENT
  Sex: Male

DRUGS (1)
  1. TREANDA [Suspect]
     Indication: CHRONIC LYMPHOCYTIC LEUKAEMIA
     Dosage: 100 MG/M2 DAYS 1 AND 2 OF 28 DAY CYCLE INTRAVENOUS
     Route: 042
     Dates: start: 20080820, end: 20080821

REACTIONS (1)
  - HERPES ZOSTER [None]
